FAERS Safety Report 6428771-3 (Version None)
Quarter: 2009Q4

REPORT INFORMATION
  Report Type: 
  Country: None (occurrence: None)
  Receive Date: 20091105
  Receipt Date: 20091027
  Transmission Date: 20100525
  Serious: Yes (Other)
  Sender: FDA-Public Use
  Company Number: US-CELGENEUS-163-20785-09102189

PATIENT
  Sex: Female

DRUGS (3)
  1. THALOMID [Suspect]
     Indication: MULTIPLE MYELOMA
     Route: 048
     Dates: start: 20070501, end: 20070101
  2. THALOMID [Suspect]
     Route: 048
     Dates: start: 20070601, end: 20070101
  3. THALOMID [Suspect]
     Route: 048
     Dates: start: 20080501, end: 20080101

REACTIONS (2)
  - BLOOD COUNT ABNORMAL [None]
  - BONE MARROW FAILURE [None]
